FAERS Safety Report 10014983 (Version 2)
Quarter: 2014Q1

REPORT INFORMATION
  Report Type: Report from Study
  Country: TR (occurrence: TR)
  Receive Date: 20140317
  Receipt Date: 20140320
  Transmission Date: 20141002
  Serious: Yes (Hospitalization)
  Sender: FDA-Public Use
  Company Number: TR-TEVA-469127USA

PATIENT
  Age: 69 Year
  Sex: Male
  Weight: 68.5 kg

DRUGS (6)
  1. BENDAMUSTINE [Suspect]
     Indication: LYMPHOCYTIC LEUKAEMIA
     Dosage: ONCE IN EVERY 28 DAYS; CYCLIC
     Route: 042
     Dates: start: 20130905
  2. BENDAMUSTINE [Suspect]
     Indication: CHRONIC LYMPHOCYTIC LEUKAEMIA
     Dosage: ONCE IN EVERY 28 DAYS; CYCLIC
     Route: 042
     Dates: start: 20140213
  3. RITUXIMAB [Suspect]
     Indication: LYMPHOCYTIC LEUKAEMIA
     Dosage: ONCE EVERY 28 DAYS
     Route: 042
     Dates: start: 20130905
  4. RITUXIMAB [Suspect]
     Indication: CHRONIC LYMPHOCYTIC LEUKAEMIA
  5. IBRUTINIB/PLACEBO [Suspect]
     Indication: CHRONIC LYMPHOCYTIC LEUKAEMIA
     Dosage: 420 MILLIGRAM DAILY;
     Dates: start: 20130905
  6. IBRUTINIB/PLACEBO [Suspect]
     Indication: LYMPHOCYTIC LEUKAEMIA
     Dosage: 420 MILLIGRAM DAILY;
     Dates: start: 20140228

REACTIONS (1)
  - Pain [Unknown]
